FAERS Safety Report 13339550 (Version 3)
Quarter: 2017Q2

REPORT INFORMATION
  Report Type: Spontaneous
  Country: GB (occurrence: GB)
  Receive Date: 20170315
  Receipt Date: 20170424
  Transmission Date: 20170830
  Serious: Yes (Hospitalization, Other)
  Sender: FDA-Public Use
  Company Number: GB-MYLANLABS-2017M1016075

PATIENT

DRUGS (3)
  1. CLOZARIL [Suspect]
     Active Substance: CLOZAPINE
     Indication: SCHIZOPHRENIA
     Dosage: 125 MG, AM
     Route: 048
     Dates: start: 20160706
  2. CLOZARIL [Suspect]
     Active Substance: CLOZAPINE
     Indication: SUBSTANCE-INDUCED PSYCHOTIC DISORDER
     Dosage: 150 MG, PM
     Route: 048
     Dates: start: 20160706
  3. CLOZARIL [Suspect]
     Active Substance: CLOZAPINE
     Dosage: 300 MG, QD
     Route: 048
     Dates: start: 201703, end: 20170318

REACTIONS (9)
  - Infection [Recovered/Resolved]
  - Drug abuser [Recovered/Resolved]
  - Pyrexia [Recovered/Resolved]
  - Drug use disorder [Recovered/Resolved]
  - Pneumonia [Recovered/Resolved]
  - Vomiting [Recovered/Resolved]
  - Epilepsy [Unknown]
  - Product use issue [Recovered/Resolved]
  - Antipsychotic drug level decreased [Recovered/Resolved]

NARRATIVE: CASE EVENT DATE: 20160706
